FAERS Safety Report 5205891-2 (Version None)
Quarter: 2006Q4

REPORT INFORMATION
  Report Type: 
  Country: None (occurrence: None)
  Receive Date: 20061027
  Receipt Date: 20060818
  Transmission Date: 20070319
  Serious: No
  Sender: FDA-Public Use
  Company Number: 012438

PATIENT
  Sex: Male

DRUGS (1)
  1. PRIALT [Suspect]
     Indication: PAIN
     Dosage: ONCE/HOUR, INTRATHECAL
     Route: 037
     Dates: end: 20060101

REACTIONS (4)
  - GINGIVAL ATROPHY [None]
  - GINGIVAL BLISTER [None]
  - SWOLLEN TONGUE [None]
  - TONGUE DISCOLOURATION [None]
